FAERS Safety Report 9832739 (Version 2)
Quarter: 2014Q1

REPORT INFORMATION
  Report Type: Spontaneous
  Country: PT (occurrence: PT)
  Receive Date: 20140121
  Receipt Date: 20140121
  Transmission Date: 20141002
  Serious: Yes (Other)
  Sender: FDA-Public Use
  Company Number: PHHY2011PT91277

PATIENT
  Age: 17 Year
  Sex: Female

DRUGS (1)
  1. METHOTREXATE [Suspect]
     Indication: JUVENILE IDIOPATHIC ARTHRITIS
     Dosage: 12 MG/M2, QW
     Route: 048

REACTIONS (4)
  - Polyarthritis [Recovering/Resolving]
  - Condition aggravated [Unknown]
  - Rheumatoid nodule [Recovering/Resolving]
  - Skin mass [Recovering/Resolving]
